FAERS Safety Report 25890078 (Version 1)
Quarter: 2025Q4

REPORT INFORMATION
  Report Type: Report from Study
  Country: US (occurrence: US)
  Receive Date: 20251007
  Receipt Date: 20251007
  Transmission Date: 20260117
  Serious: Yes (Other)
  Sender: RANBAXY
  Company Number: US-SUN PHARMACEUTICAL INDUSTRIES LTD-2025R1-529990

PATIENT
  Sex: Female

DRUGS (1)
  1. CYCLOSPORINE [Suspect]
     Active Substance: CYCLOSPORINE
     Indication: Dry eye
     Dosage: UNK
     Route: 047
     Dates: start: 202509

REACTIONS (8)
  - Instillation site irritation [Unknown]
  - Product packaging difficult to open [Unknown]
  - Therapy cessation [Unknown]
  - Eye pain [Unknown]
  - Vision blurred [Unknown]
  - Drug ineffective [Unknown]
  - Condition aggravated [Unknown]
  - Blindness transient [Unknown]
